FAERS Safety Report 13976669 (Version 2)
Quarter: 2017Q3

REPORT INFORMATION
  Report Type: Report from Study
  Country: US (occurrence: US)
  Receive Date: 20170915
  Receipt Date: 20170919
  Transmission Date: 20171128
  Serious: Yes (Hospitalization)
  Sender: FDA-Public Use
  Company Number: US-JNJFOC-20170913078

PATIENT
  Age: 18 Year
  Sex: Female
  Weight: 37.5 kg

DRUGS (2)
  1. HUMIRA [Concomitant]
     Active Substance: ADALIMUMAB
     Route: 065
  2. REMICADE [Suspect]
     Active Substance: INFLIXIMAB
     Indication: INFLAMMATORY BOWEL DISEASE
     Route: 042
     Dates: start: 20070329, end: 20101110

REACTIONS (1)
  - Intestinal anastomosis complication [Recovered/Resolved]

NARRATIVE: CASE EVENT DATE: 20170810
